FAERS Safety Report 11792238 (Version 2)
Quarter: 2015Q4

REPORT INFORMATION
  Report Type: Spontaneous
  Country: FR (occurrence: FR)
  Receive Date: 20151201
  Receipt Date: 20151223
  Transmission Date: 20160305
  Serious: Yes (Other)
  Sender: FDA-Public Use
  Company Number: FR-ROCHE-1670174

PATIENT
  Age: 42 Year
  Sex: Male

DRUGS (2)
  1. ZELBORAF [Suspect]
     Active Substance: VEMURAFENIB
     Indication: MALIGNANT MELANOMA
     Route: 048
     Dates: start: 201307
  2. ZELBORAF [Suspect]
     Active Substance: VEMURAFENIB
     Route: 048

REACTIONS (1)
  - Lymphangiectasia intestinal [Recovered/Resolved]

NARRATIVE: CASE EVENT DATE: 201409
